FAERS Safety Report 5010601-8 (Version None)
Quarter: 2006Q2

REPORT INFORMATION
  Report Type: 
  Country: None (occurrence: None)
  Receive Date: 20060525
  Receipt Date: 20060227
  Transmission Date: 20061013
  Serious: Yes (Hospitalization)
  Sender: FDA-Public Use
  Company Number: PHEH2006US02725

PATIENT
  Age: 52 Year
  Sex: Female
  Weight: 58.956 kg

DRUGS (8)
  1. FORADIL [Suspect]
     Indication: ASTHMA
     Dosage: ONE DOSE, 12MCG
     Dates: start: 20060220, end: 20060220
  2. XANAX [Concomitant]
     Indication: ANXIETY
     Dosage: 1MG, FIVE TIMES A DAY
     Route: 048
  3. GEODON [Concomitant]
     Indication: ANXIETY
     Dosage: 20MG, QD
     Route: 048
  4. FLUOXETINE [Concomitant]
     Indication: ANXIETY
     Dosage: 20MG, QD
     Route: 048
  5. SEREVENT [Concomitant]
     Indication: ASTHMA
     Dosage: BID
     Route: 048
  6. SINGULAIR [Concomitant]
     Indication: ASTHMA
     Dosage: 10MG, QD
     Route: 048
  7. DYAZIDE [Concomitant]
     Indication: BLOOD PRESSURE
     Dosage: 37.5/25MG, QD
     Route: 048
  8. LISINOPRIL [Concomitant]
     Indication: BLOOD PRESSURE
     Dosage: 10MG QD
     Route: 048

REACTIONS (4)
  - ANXIETY [None]
  - FEELING JITTERY [None]
  - NAUSEA [None]
  - VOMITING [None]
